FAERS Safety Report 20157606 (Version 1)
Quarter: 2021Q4

REPORT INFORMATION
  Report Type: Spontaneous
  Country: US (occurrence: US)
  Receive Date: 20211207
  Receipt Date: 20211207
  Transmission Date: 20220303
  Serious: No
  Sender: FDA-Public Use
  Company Number: US-IBSA PHARMA INC.-2021IBS000174

PATIENT

DRUGS (4)
  1. TIROSINT [Suspect]
     Active Substance: LEVOTHYROXINE SODIUM
     Indication: Thyroid hormone replacement therapy
     Dosage: 100 ?G, QD
     Route: 048
     Dates: start: 20200801
  2. TIROSINT [Suspect]
     Active Substance: LEVOTHYROXINE SODIUM
     Dosage: 112 ?G, UNK
     Route: 048
  3. TIROSINT [Suspect]
     Active Substance: LEVOTHYROXINE SODIUM
     Dosage: 100 ?G, QD
     Route: 048
  4. LASIX                              /00032601/ [Concomitant]
     Indication: Product used for unknown indication
     Dosage: UNK

REACTIONS (19)
  - Sinus disorder [Unknown]
  - Peripheral swelling [Unknown]
  - Lymphoedema [Unknown]
  - Hypoaesthesia oral [Unknown]
  - Abdominal discomfort [Unknown]
  - Gastrointestinal sounds abnormal [Unknown]
  - Anger [Unknown]
  - Feeling drunk [Unknown]
  - Somnolence [Unknown]
  - Dizziness [Unknown]
  - Feeling abnormal [Unknown]
  - Muscle swelling [Unknown]
  - Affect lability [Unknown]
  - Irritability [Unknown]
  - Dyspnoea [Unknown]
  - Swollen tongue [Unknown]
  - Headache [Unknown]
  - Rash pruritic [Unknown]
  - Palpitations [Unknown]

NARRATIVE: CASE EVENT DATE: 20210601
